FAERS Safety Report 4927731-9 (Version None)
Quarter: 2006Q1

REPORT INFORMATION
  Report Type: 
  Country: None (occurrence: None)
  Receive Date: 20060228
  Receipt Date: 20060222
  Transmission Date: 20060701
  Serious: Yes (Hospitalization)
  Sender: FDA-Public Use
  Company Number: US-JNJFOC-20060205876

PATIENT
  Sex: Male
  Weight: 76.2 kg

DRUGS (3)
  1. DURAGESIC-100 [Suspect]
     Route: 062
  2. VICODIN ES [Concomitant]
     Route: 048
  3. VICODIN ES [Concomitant]
     Indication: PAIN
     Dosage: 7.5 MG OXYCODONE PLUS 700 MG ACETAMINOPHEN, 4 TABLETS IN 24 HOURS AS NEEDED, ORAL
     Route: 048

REACTIONS (2)
  - MUSCLE SPASMS [None]
  - SCIATICA [None]
